FAERS Safety Report 4801862-6 (Version None)
Quarter: 2005Q4

REPORT INFORMATION
  Report Type: 
  Country: None (occurrence: None)
  Receive Date: 20051018
  Receipt Date: 20051006
  Transmission Date: 20060501
  Serious: Yes (Hospitalization, Other)
  Sender: FDA-Public Use
  Company Number: PHFR2005GB03323

PATIENT
  Age: 59 Year
  Sex: Male

DRUGS (6)
  1. DICLOFENAC [Suspect]
     Indication: GOUT
     Dosage: 50MG BID PRN
     Route: 048
     Dates: end: 20050915
  2. ACETYLSALICYLIC ACID SRT [Suspect]
     Indication: PROPHYLAXIS
     Route: 048
  3. GAVISCON                                /GFR/ [Concomitant]
     Indication: DYSPEPSIA
     Route: 048
  4. SIMVASTATIN [Concomitant]
     Indication: BLOOD CHOLESTEROL INCREASED
     Dosage: 40MG NOCTE
     Route: 048
  5. METOPROLOL [Concomitant]
     Indication: HYPERTENSION
     Dosage: 25 MG, BID
     Route: 048
     Dates: end: 20050915
  6. ACETAMINOPHEN W/ CODEINE [Concomitant]
     Indication: ARTHRITIS
     Route: 048

REACTIONS (8)
  - ABDOMINAL PAIN [None]
  - BLOOD PRESSURE DECREASED [None]
  - DUODENITIS [None]
  - ENDOSCOPY ABNORMAL [None]
  - GASTRITIS EROSIVE [None]
  - HAEMATEMESIS [None]
  - HIATUS HERNIA [None]
  - REFLUX OESOPHAGITIS [None]
